FAERS Safety Report 9647644 (Version 3)
Quarter: 2013Q4

REPORT INFORMATION
  Report Type: Spontaneous
  Country: IE (occurrence: IE)
  Receive Date: 20131028
  Receipt Date: 20131206
  Transmission Date: 20140711
  Serious: Yes (Death)
  Sender: FDA-Public Use
  Company Number: IE-AMGEN-IRLSP2013074968

PATIENT
  Age: 90 Year
  Sex: Female

DRUGS (2)
  1. PROLIA [Suspect]
     Indication: OSTEOPOROSIS
     Dosage: UNK
     Route: 065
     Dates: start: 20110520
  2. PRADAXA [Concomitant]
     Indication: ATRIAL FIBRILLATION
     Dosage: 75 MG, BID
     Route: 048
     Dates: start: 20121026

REACTIONS (1)
  - Cerebrovascular accident [Fatal]
